FAERS Safety Report 9624122 (Version 1)
Quarter: 2013Q4

REPORT INFORMATION
  Report Type: Report from Study
  Country: NL (occurrence: NL)
  Receive Date: 20131015
  Receipt Date: 20131015
  Transmission Date: 20140711
  Serious: Yes (Other)
  Sender: FDA-Public Use
  Company Number: PHHY2013NL115044

PATIENT
  Age: 62 Year
  Sex: Female

DRUGS (10)
  1. ACLASTA [Suspect]
     Indication: OSTEOPOROSIS
     Dosage: 5 MG/100 ML, (1 PER 52 WEEKS)
     Route: 042
     Dates: start: 20111014
  2. ACLASTA [Suspect]
     Dosage: 5 MG/100 ML. (1 PER 52 WEEKS)
     Route: 042
     Dates: start: 20121012
  3. ACLASTA [Suspect]
     Dosage: 5 MG/100ML, 1 PER 52 WEEKS
     Route: 042
     Dates: start: 20131011
  4. PANTOZOL [Concomitant]
     Dosage: 40 MG,(1X1)
  5. PERSANTIN [Concomitant]
     Dosage: 200 MG, (2X1)
  6. CARBASALATE CALCIUM [Concomitant]
     Dosage: 100 MG ,(1X1)
  7. DICLOFENAC [Concomitant]
     Dosage: 50 MG, (3X1)
  8. OXYCODONE [Concomitant]
     Dosage: 10 MG, (3X1)
  9. LORMETAZEPAM [Concomitant]
     Dosage: 2 MG, ,(1X1)
  10. HYPROMELLOSE [Concomitant]
     Dosage: 3 MG/ML, (3 TO 4X1)

REACTIONS (3)
  - Hip fracture [Recovering/Resolving]
  - Fall [Unknown]
  - Vitamin D deficiency [Not Recovered/Not Resolved]
